FAERS Safety Report 8615010-8 (Version None)
Quarter: 2012Q3

REPORT INFORMATION
  Report Type: 
  Country: None (occurrence: None)
  Receive Date: 20120814
  Receipt Date: 20120814
  Transmission Date: 20120928
  Serious: Yes (Hospitalization)
  Sender: FDA-Public Use
  Company Number: None

PATIENT
  Age: 63 Year
  Sex: Male
  Weight: 79.9 kg

DRUGS (2)
  1. IOPROMIDE [Suspect]
     Indication: CARDIOVASCULAR DISORDER
     Dosage: 150 ML ONCE IV
     Route: 042
     Dates: start: 20120613, end: 20120613
  2. IOPROMIDE [Suspect]
     Indication: SURGERY
     Dosage: 150 ML ONCE IV
     Route: 042
     Dates: start: 20120613, end: 20120613

REACTIONS (4)
  - TREMOR [None]
  - CHILLS [None]
  - PYREXIA [None]
  - RESPIRATORY DEPRESSION [None]
